FAERS Safety Report 16468576 (Version 1)
Quarter: 2019Q2

REPORT INFORMATION
  Report Type: Spontaneous
  Country: US (occurrence: US)
  Receive Date: 20190624
  Receipt Date: 20190624
  Transmission Date: 20190711
  Serious: Yes (Other)
  Sender: FDA-Public Use
  Company Number: US-ROCHE-2342731

PATIENT
  Age: 20 Year
  Sex: Male
  Weight: 65.83 kg

DRUGS (4)
  1. ZOFRAN [Concomitant]
     Active Substance: ONDANSETRON HYDROCHLORIDE
     Route: 065
     Dates: start: 20190331, end: 20190510
  2. MECLIZINE [Concomitant]
     Active Substance: MECLIZINE HYDROCHLORIDE
     Route: 065
     Dates: start: 20190331, end: 20190510
  3. HEMLIBRA [Suspect]
     Active Substance: EMICIZUMAB-KXWH
     Indication: FACTOR VIII DEFICIENCY
     Dosage: ONGOING: YES   105MG/0.7ML SDV INJ
     Route: 058
     Dates: start: 201902
  4. DIAZEPAM. [Concomitant]
     Active Substance: DIAZEPAM
     Route: 065
     Dates: start: 20190331, end: 20190510

REACTIONS (1)
  - Vestibular neuronitis [Unknown]

NARRATIVE: CASE EVENT DATE: 20190331
